FAERS Safety Report 5103985-3 (Version None)
Quarter: 2006Q3

REPORT INFORMATION
  Report Type: 
  Country: None (occurrence: None)
  Receive Date: 20060911
  Receipt Date: 20060829
  Transmission Date: 20061208
  Serious: Yes (Other)
  Sender: FDA-Public Use
  Company Number: 2006100682

PATIENT
  Age: 68 Year
  Sex: Male
  Weight: 100 kg

DRUGS (6)
  1. TAHOR (ATORVASTATIN) [Suspect]
     Indication: ANXIETY
     Dosage: 40 MG (40 MG, 1 IN 1 D), ORAL
     Route: 048
     Dates: start: 20051219, end: 20060808
  2. GLUCOPHAGE [Concomitant]
  3. BIPRETERAX (INDAPAMIDE, PERINDOPRIL ERBUMINE) [Concomitant]
  4. DIAMICRON (GLICLAZIDE) [Concomitant]
  5. ASPIRIN [Concomitant]
  6. AMLODIPINE [Concomitant]

REACTIONS (7)
  - ASTHENIA [None]
  - DIABETES MELLITUS [None]
  - FATIGUE [None]
  - HEADACHE [None]
  - MUSCLE DISORDER [None]
  - MYALGIA [None]
  - PYREXIA [None]
